FAERS Safety Report 21824738 (Version 3)
Quarter: 2023Q1

REPORT INFORMATION
  Report Type: Spontaneous
  Country: US (occurrence: US)
  Receive Date: 20230105
  Receipt Date: 20230316
  Transmission Date: 20230418
  Serious: No
  Sender: FDA-Public Use
  Company Number: US-002147023-NVSC2023US002236

PATIENT
  Sex: Male

DRUGS (1)
  1. PREDNISOLONE ACETATE [Suspect]
     Active Substance: PREDNISOLONE ACETATE
     Indication: Product used for unknown indication
     Dosage: UNK,  1% 5ML LDP US
     Route: 065

REACTIONS (5)
  - Eye irritation [Unknown]
  - Product packaging issue [Unknown]
  - Product dispensing error [Unknown]
  - Product dose omission issue [Unknown]
  - Wrong product administered [Unknown]
